FAERS Safety Report 4894323-X (Version None)
Quarter: 2006Q1

REPORT INFORMATION
  Report Type: 
  Country: None (occurrence: None)
  Receive Date: 20060127
  Receipt Date: 20051222
  Transmission Date: 20060701
  Serious: Yes (Hospitalization, Disabling, Other)
  Sender: FDA-Public Use
  Company Number: US-MERCK-0512USA03625

PATIENT
  Age: 58 Year
  Sex: Male
  Weight: 102 kg

DRUGS (15)
  1. VIOXX [Suspect]
     Indication: MONARTHRITIS
     Route: 048
     Dates: start: 19990101, end: 19991001
  2. VIOXX [Suspect]
     Route: 048
     Dates: start: 20010101, end: 20040901
  3. TAGAMET [Concomitant]
     Route: 065
  4. CARDURA [Concomitant]
     Route: 065
  5. ASCORBIC ACID [Concomitant]
     Route: 065
  6. VITAMIN E [Concomitant]
     Route: 065
  7. PLAVIX [Concomitant]
     Route: 065
  8. SMZ-TMP [Concomitant]
     Route: 065
  9. NALEX-A [Concomitant]
     Route: 065
  10. DOXYCYCLINE [Concomitant]
     Route: 065
  11. DOXAZOSIN MESYLATE [Concomitant]
     Route: 065
  12. LISINOPRIL [Concomitant]
     Route: 065
  13. OSTEO-BI-FLEX [Concomitant]
     Route: 065
  14. GARLIC [Concomitant]
     Route: 065
  15. ZESTRIL [Concomitant]
     Route: 065

REACTIONS (2)
  - ARTHROPATHY [None]
  - CEREBROVASCULAR ACCIDENT [None]
